FAERS Safety Report 12191621 (Version 3)
Quarter: 2016Q2

REPORT INFORMATION
  Report Type: Spontaneous
  Country: JP (occurrence: JP)
  Receive Date: 20160318
  Receipt Date: 20160429
  Transmission Date: 20160815
  Serious: Yes (Life-Threatening, Hospitalization, Disabling)
  Sender: FDA-Public Use
  Company Number: JP-BRISTOL-MYERS SQUIBB COMPANY-BMS-2016-002314

PATIENT
  Age: 81 Year
  Sex: Female
  Weight: 37 kg

DRUGS (3)
  1. CETUXIMAB [Suspect]
     Active Substance: CETUXIMAB
     Dosage: 250 MG/M2, QWK
     Route: 042
     Dates: start: 20151110
  2. CETUXIMAB [Suspect]
     Active Substance: CETUXIMAB
     Indication: GINGIVAL CANCER
     Dosage: 400 MG/M2, QWK
     Route: 042
     Dates: start: 20151110, end: 20151216
  3. PACLITAXEL. [Suspect]
     Active Substance: PACLITAXEL
     Indication: GINGIVAL CANCER
     Dosage: 70 MG/M2, WEEKLY (1/W)
     Route: 042
     Dates: start: 20151111, end: 20151209

REACTIONS (5)
  - Neutrophil count decreased [Recovering/Resolving]
  - Interstitial lung disease [Recovered/Resolved]
  - Hypoalbuminaemia [Unknown]
  - Constipation [Unknown]
  - Febrile neutropenia [Recovered/Resolved]

NARRATIVE: CASE EVENT DATE: 20151124
